FAERS Safety Report 6274615-2 (Version None)
Quarter: 2009Q3

REPORT INFORMATION
  Report Type: 
  Country: None (occurrence: None)
  Receive Date: 20090717
  Receipt Date: 20090708
  Transmission Date: 20100115
  Serious: Yes (Other)
  Sender: FDA-Public Use
  Company Number: SPV1-2009-01433

PATIENT
  Age: 41 Year
  Sex: Male
  Weight: 77.1 kg

DRUGS (4)
  1. DAYTRANA [Suspect]
     Indication: ATTENTION DEFICIT/HYPERACTIVITY DISORDER
     Dosage: 15 MG, 1X/DAY, QD; TRANSDERMAL, 10 MG, 1X/DAY; TRANSDERMAL
     Route: 062
     Dates: start: 20090301, end: 20090601
  2. DAYTRANA [Suspect]
     Indication: ATTENTION DEFICIT/HYPERACTIVITY DISORDER
     Dosage: 15 MG, 1X/DAY, QD; TRANSDERMAL, 10 MG, 1X/DAY; TRANSDERMAL
     Route: 062
     Dates: start: 20090601
  3. RUSOERDAL CONSTA (RISPERIDONE) [Concomitant]
  4. ADVAIR DISKUS 100/50 [Concomitant]

REACTIONS (3)
  - CONDITION AGGRAVATED [None]
  - HOMICIDAL IDEATION [None]
  - OFF LABEL USE [None]
